FAERS Safety Report 20609841 (Version 3)
Quarter: 2022Q2

REPORT INFORMATION
  Report Type: Other
  Country: US (occurrence: None)
  Receive Date: 20220318
  Receipt Date: 20220506
  Transmission Date: 20220720
  Serious: Yes (Death)
  Sender: FDA-Public Use
  Company Number: US-ROCHE-3051458

PATIENT
  Age: 83 Year
  Sex: Male

DRUGS (4)
  1. ESBRIET [Suspect]
     Active Substance: PIRFENIDONE
     Indication: Idiopathic pulmonary fibrosis
     Dosage: TAKE 1 TABLET BY MOUTH 3 TIMES A DAY
     Route: 048
     Dates: start: 20210115
  2. ESBRIET [Suspect]
     Active Substance: PIRFENIDONE
     Indication: Agranulocytosis
  3. ESBRIET [Suspect]
     Active Substance: PIRFENIDONE
     Indication: Chronic obstructive pulmonary disease
  4. ESBRIET [Suspect]
     Active Substance: PIRFENIDONE
     Indication: Interstitial lung disease

REACTIONS (1)
  - Death [Fatal]

NARRATIVE: CASE EVENT DATE: 20220227
